FAERS Safety Report 4311522-6 (Version None)
Quarter: 2004Q1

REPORT INFORMATION
  Report Type: 
  Country: None (occurrence: None)
  Receive Date: 20040302
  Receipt Date: 20031114
  Transmission Date: 20041129
  Serious: Yes (Other)
  Sender: FDA-Public Use
  Company Number: 200328493BWH

PATIENT
  Age: 59 Year
  Sex: Male

DRUGS (5)
  1. LEVITRA [Suspect]
     Indication: ERECTILE DYSFUNCTION
     Dosage: 5 MG, TOTAL DAILY, ORAL; 5 MG, TOTAL DAILY, ORAL; 10 MG, PRN, ORAL
     Route: 048
     Dates: start: 20031001
  2. LEVITRA [Suspect]
     Indication: ERECTILE DYSFUNCTION
     Dosage: 5 MG, TOTAL DAILY, ORAL; 5 MG, TOTAL DAILY, ORAL; 10 MG, PRN, ORAL
     Route: 048
     Dates: start: 20031001
  3. LEVITRA [Suspect]
     Indication: ERECTILE DYSFUNCTION
     Dosage: 5 MG, TOTAL DAILY, ORAL; 5 MG, TOTAL DAILY, ORAL; 10 MG, PRN, ORAL
     Route: 048
     Dates: start: 20031001
  4. ASPIRIN [Concomitant]
  5. VIAGRA [Concomitant]

REACTIONS (2)
  - BLOOD PRESSURE INCREASED [None]
  - TACHYCARDIA [None]
